FAERS Safety Report 22255980 (Version 2)
Quarter: 2023Q2

REPORT INFORMATION
  Report Type: Report from Study
  Country: NL (occurrence: NL)
  Receive Date: 20230426
  Receipt Date: 20230616
  Transmission Date: 20230722
  Serious: Yes (Other)
  Sender: FDA-Public Use
  Company Number: NL-ABBVIE-4740780

PATIENT
  Sex: Female

DRUGS (5)
  1. CARBIDOPA\LEVODOPA [Suspect]
     Active Substance: CARBIDOPA\LEVODOPA
     Indication: Parkinson^s disease
     Dosage: CD: 3.6 ML/H
     Route: 050
  2. CARBIDOPA\LEVODOPA [Suspect]
     Active Substance: CARBIDOPA\LEVODOPA
     Dosage: MD: 10.0 ML, CD: 3.5 ML/H, ED: 1.5 ML?REMAINS AT 16 HOURS
     Route: 050
  3. CARBIDOPA\LEVODOPA [Suspect]
     Active Substance: CARBIDOPA\LEVODOPA
     Dosage: REMAINS AT 16 HOURS
     Route: 050
     Dates: start: 20230112
  4. CARBIDOPA\LEVODOPA [Suspect]
     Active Substance: CARBIDOPA\LEVODOPA
     Dosage: MD: 10.0 ML, CD: 3.5 ML/H, ED: 1.5 ML
     Route: 050
  5. POLYETHYLENE GLYCOLS [Concomitant]
     Active Substance: POLYETHYLENE GLYCOLS
     Indication: Product used for unknown indication

REACTIONS (11)
  - Stenosis [Unknown]
  - Cognitive disorder [Not Recovered/Not Resolved]
  - Gait disturbance [Recovered/Resolved]
  - Therapeutic product effect incomplete [Not Recovered/Not Resolved]
  - Depressed mood [Not Recovered/Not Resolved]
  - Gastric disorder [Recovered/Resolved]
  - Loss of personal independence in daily activities [Recovered/Resolved]
  - Spinal pain [Unknown]
  - Memory impairment [Not Recovered/Not Resolved]
  - Gait disturbance [Not Recovered/Not Resolved]
  - Affective disorder [Not Recovered/Not Resolved]

NARRATIVE: CASE EVENT DATE: 20230401
